FAERS Safety Report 12346703 (Version 12)
Quarter: 2023Q1

REPORT INFORMATION
  Report Type: Other
  Country: CA (occurrence: CA)
  Receive Date: 20160509
  Receipt Date: 20230317
  Transmission Date: 20230417
  Serious: Yes (Other)
  Sender: FDA-Public Use
  Company Number: CA-ROCHE-1754315

PATIENT
  Age: 41 Year
  Sex: Male

DRUGS (3)
  1. XOLAIR [Suspect]
     Active Substance: OMALIZUMAB
     Indication: Asthma
     Route: 058
     Dates: start: 20131011
  2. XOLAIR [Suspect]
     Active Substance: OMALIZUMAB
     Route: 058
     Dates: start: 20210810
  3. XOLAIR [Suspect]
     Active Substance: OMALIZUMAB
     Route: 058
     Dates: start: 20221212

REACTIONS (8)
  - Lower respiratory tract infection [Unknown]
  - Pneumonia [Unknown]
  - Bronchitis [Unknown]
  - Ligament sprain [Unknown]
  - Malaise [Unknown]
  - Asthma [Unknown]
  - Productive cough [Unknown]
  - Influenza [Unknown]

NARRATIVE: CASE EVENT DATE: 20170501
